FAERS Safety Report 12179638 (Version 1)
Quarter: 2016Q1

REPORT INFORMATION
  Report Type: Spontaneous
  Country: US (occurrence: US)
  Receive Date: 20160315
  Receipt Date: 20160315
  Transmission Date: 20160526
  Serious: Yes (Other)
  Sender: FDA-Public Use
  Company Number: US-BEH-2016059846

PATIENT
  Sex: Female
  Weight: 91 kg

DRUGS (28)
  1. HYDROCODONE [Concomitant]
     Active Substance: HYDROCODONE
  2. ALBUTEROL. [Concomitant]
     Active Substance: ALBUTEROL
  3. LYSINE [Concomitant]
     Active Substance: LYSINE
  4. DIPHENHYDRAMINE. [Concomitant]
     Active Substance: DIPHENHYDRAMINE
  5. OMEPRAZOLE. [Concomitant]
     Active Substance: OMEPRAZOLE
  6. METFORMIN [Concomitant]
     Active Substance: METFORMIN HYDROCHLORIDE
  7. NORETHINDRONE. [Concomitant]
     Active Substance: NORETHINDRONE
  8. FENOFIBRATE. [Concomitant]
     Active Substance: FENOFIBRATE
  9. HIZENTRA [Suspect]
     Active Substance: HUMAN IMMUNOGLOBULIN G
     Indication: HYPOGAMMAGLOBULINAEMIA
     Route: 058
     Dates: start: 20150225
  10. VITAMIN B [Concomitant]
     Active Substance: VITAMIN B
  11. QVAR [Concomitant]
     Active Substance: BECLOMETHASONE DIPROPIONATE
  12. LMX [Concomitant]
     Active Substance: LIDOCAINE
  13. TEMAZEPAM. [Concomitant]
     Active Substance: TEMAZEPAM
  14. DICLOFENAC [Concomitant]
     Active Substance: DICLOFENAC
  15. ZOLOFT [Concomitant]
     Active Substance: SERTRALINE HYDROCHLORIDE
  16. ACETAMINOPHEN. [Concomitant]
     Active Substance: ACETAMINOPHEN
  17. KLONOPIN [Concomitant]
     Active Substance: CLONAZEPAM
  18. PRAVASTATIN [Concomitant]
     Active Substance: PRAVASTATIN\PRAVASTATIN SODIUM
  19. ZYRTEC [Concomitant]
     Active Substance: CETIRIZINE HYDROCHLORIDE
  20. LOSARTAN. [Concomitant]
     Active Substance: LOSARTAN
  21. LANTUS [Concomitant]
     Active Substance: INSULIN GLARGINE
  22. CYCLOBENZAPRINE [Concomitant]
     Active Substance: CYCLOBENZAPRINE
  23. VITAMIN D [Concomitant]
     Active Substance: CHOLECALCIFEROL
  24. AMLODIPINE [Concomitant]
     Active Substance: AMLODIPINE BESYLATE
  25. LIDOCAINE/PRILOCAINE [Concomitant]
  26. XOLAIR [Concomitant]
     Active Substance: OMALIZUMAB
  27. EPIPEN [Concomitant]
     Active Substance: EPINEPHRINE
  28. ACIDOPHILUS [Concomitant]
     Active Substance: LACTOBACILLUS ACIDOPHILUS

REACTIONS (1)
  - Nephropathy [Unknown]
